FAERS Safety Report 9106273 (Version 3)
Quarter: 2013Q2

REPORT INFORMATION
  Report Type: Report from Study
  Country: US (occurrence: US)
  Receive Date: 20130221
  Receipt Date: 20130510
  Transmission Date: 20140414
  Serious: Yes (Hospitalization)
  Sender: FDA-Public Use
  Company Number: PHEH2013US003216

PATIENT
  Sex: Female

DRUGS (9)
  1. EXTAVIA [Suspect]
     Indication: MULTIPLE SCLEROSIS
     Dosage: 1 ML, (0.25 MG) QOD
     Route: 058
  2. TYLENOL [Concomitant]
  3. DIHYDROERGOTAMINE [Concomitant]
  4. DOXEPIN [Concomitant]
     Dosage: 1 DF, QD
  5. TYLENOL EXTRA-STRENGTH [Concomitant]
  6. PRENATAL VITAMINS [Concomitant]
  7. MAGNESIUM [Concomitant]
  8. CALCIUM [Concomitant]
  9. VITAMIN D [Concomitant]

REACTIONS (7)
  - Viral infection [Not Recovered/Not Resolved]
  - Pneumonia [Not Recovered/Not Resolved]
  - Pyrexia [Not Recovered/Not Resolved]
  - Injection site reaction [Not Recovered/Not Resolved]
  - Injection site erythema [Not Recovered/Not Resolved]
  - Injection site pain [Not Recovered/Not Resolved]
  - Injection site mass [Not Recovered/Not Resolved]
